FAERS Safety Report 9911964 (Version 1)
Quarter: 2014Q1

REPORT INFORMATION
  Report Type: Spontaneous
  Country: US (occurrence: US)
  Receive Date: 20140219
  Receipt Date: 20140219
  Transmission Date: 20141002
  Serious: No
  Sender: FDA-Public Use
  Company Number: US-MYLANLABS-2013S1024795

PATIENT
  Age: 42 Year
  Sex: Female

DRUGS (1)
  1. EPIPEN 2-PAK [Suspect]
     Indication: HYPERSENSITIVITY
     Route: 030
     Dates: start: 2013

REACTIONS (1)
  - Device failure [Recovered/Resolved]
